FAERS Safety Report 5277847-5 (Version None)
Quarter: 2007Q1

REPORT INFORMATION
  Report Type: 
  Country: None (occurrence: None)
  Receive Date: 20070327
  Receipt Date: 20070315
  Transmission Date: 20070707
  Serious: Yes (Other)
  Sender: FDA-Public Use
  Company Number: FR-PFIZER INC-2007019847

PATIENT
  Sex: Male

DRUGS (2)
  1. TAHOR [Suspect]
     Indication: HYPERCHOLESTEROLAEMIA
  2. LEVOTHYROXINE SODIUM [Concomitant]

REACTIONS (2)
  - BLOOD GLUCOSE INCREASED [None]
  - BLOOD THYROID STIMULATING HORMONE INCREASED [None]
